FAERS Safety Report 8299713-3 (Version None)
Quarter: 2012Q2

REPORT INFORMATION
  Report Type: 
  Country: None (occurrence: None)
  Receive Date: 20120419
  Receipt Date: 20120410
  Transmission Date: 20120825
  Serious: Yes (Other)
  Sender: FDA-Public Use
  Company Number: US-ROCHE-771329

PATIENT
  Age: 12 Month
  Sex: Male
  Weight: 7.4 kg

DRUGS (2)
  1. PEGINTERFERON ALFA-2A [Suspect]
     Indication: PRODUCT USED FOR UNKNOWN INDICATION
     Route: 058
     Dates: start: 20090501, end: 20100401
  2. COPEGUS [Suspect]
     Indication: PRODUCT USED FOR UNKNOWN INDICATION
     Route: 048
     Dates: start: 20090501, end: 20100401

REACTIONS (4)
  - HEART RATE DECREASED [None]
  - PREMATURE LABOUR [None]
  - LIVE BIRTH [None]
  - PRE-ECLAMPSIA [None]
